FAERS Safety Report 20967059 (Version 5)
Quarter: 2022Q3

REPORT INFORMATION
  Report Type: Report from Study
  Country: FR (occurrence: FR)
  Receive Date: 20220616
  Receipt Date: 20220923
  Transmission Date: 20221027
  Serious: Yes (Hospitalization)
  Sender: FDA-Public Use
  Company Number: FR-SA-SAC20220610001328

PATIENT
  Age: 77 Year
  Sex: Male
  Weight: 63 kg

DRUGS (21)
  1. ISATUXIMAB [Suspect]
     Active Substance: ISATUXIMAB
     Indication: Plasma cell myeloma
     Dosage: 690 MG (THERAPY INTERUPTED SINCE 09-JUN-2022)
     Dates: start: 20220530, end: 20220609
  2. ISATUXIMAB [Suspect]
     Active Substance: ISATUXIMAB
     Dosage: 735 MG
     Dates: start: 20220616, end: 20220616
  3. ISATUXIMAB [Suspect]
     Active Substance: ISATUXIMAB
     Dosage: 690 MG
     Dates: start: 20220509, end: 20220509
  4. ISATUXIMAB [Suspect]
     Active Substance: ISATUXIMAB
     Dosage: 740 MG
     Dates: start: 20220804, end: 20220804
  5. LENALIDOMIDE [Suspect]
     Active Substance: LENALIDOMIDE
     Indication: Plasma cell myeloma
     Dosage: 25 MG (THERAPY INTERUPTED SINCE 09-JUN-2022)
     Dates: start: 20220529, end: 20220609
  6. LENALIDOMIDE [Suspect]
     Active Substance: LENALIDOMIDE
     Dosage: 25 MG
     Dates: start: 20220616, end: 20220616
  7. LENALIDOMIDE [Suspect]
     Active Substance: LENALIDOMIDE
     Dosage: 25 MG
     Dates: start: 20220509, end: 20220509
  8. DEXAMETHASONE [Suspect]
     Active Substance: DEXAMETHASONE
     Indication: Plasma cell myeloma
     Dosage: 20 MG (INTERUPTED SINCE: 09-JUN-2022)
     Dates: start: 20220530, end: 20220609
  9. DEXAMETHASONE [Suspect]
     Active Substance: DEXAMETHASONE
     Dosage: 20 MG
     Dates: start: 20220616, end: 20220616
  10. DEXAMETHASONE [Suspect]
     Active Substance: DEXAMETHASONE
     Dosage: 20 MG
     Dates: start: 20220509, end: 20220509
  11. DEXAMETHASONE [Suspect]
     Active Substance: DEXAMETHASONE
     Dosage: 20 MG
     Dates: start: 20220804, end: 20220804
  12. LIDOCAINE [Concomitant]
     Active Substance: LIDOCAINE
     Indication: Pain
     Dosage: UNK
     Route: 003
     Dates: start: 20220530
  13. LANSOPRAZOLE [Concomitant]
     Active Substance: LANSOPRAZOLE
     Indication: Gastrooesophageal reflux disease
     Dosage: 15 MG
     Route: 048
     Dates: start: 20220518
  14. LYRICA [Concomitant]
     Active Substance: PREGABALIN
     Indication: Pain
     Dosage: 25 MG
     Route: 048
     Dates: start: 20220518
  15. OXYCODONE [Concomitant]
     Active Substance: OXYCODONE
     Indication: Pain
     Dosage: 90 MG
     Route: 048
     Dates: start: 20220518
  16. ACETAMINOPHEN [Concomitant]
     Active Substance: ACETAMINOPHEN
     Indication: Pain
     Dosage: 3 G
     Route: 048
     Dates: start: 20220518
  17. LACTULOSE [Concomitant]
     Active Substance: LACTULOSE
     Indication: Constipation
     Dosage: 30 G
     Dates: start: 20220518
  18. PICOLAX [CITRIC ACID;MAGNESIUM OXIDE;SODIUM PICOSULFATE] [Concomitant]
     Indication: Constipation
     Dosage: 5.9 G
     Route: 054
     Dates: start: 20220518
  19. POLYETHYLENE GLYCOLS [Concomitant]
     Active Substance: POLYETHYLENE GLYCOLS
     Indication: Constipation
     Dosage: 20 MG
     Route: 048
     Dates: start: 20220518
  20. NALOXEGOL OXALATE [Concomitant]
     Active Substance: NALOXEGOL OXALATE
     Indication: Constipation
     Dosage: 25 MG
     Route: 048
     Dates: start: 20220518
  21. OXYCODONE HYDROCHLORIDE [Concomitant]
     Active Substance: OXYCODONE HYDROCHLORIDE
     Indication: Pain
     Dosage: 60 MG
     Route: 048
     Dates: start: 20220518

REACTIONS (2)
  - Diplopia [Recovered/Resolved]
  - Large intestine infection [Recovered/Resolved]

NARRATIVE: CASE EVENT DATE: 20220602
